FAERS Safety Report 13302247 (Version 1)
Quarter: 2017Q1

REPORT INFORMATION
  Report Type: Spontaneous
  Country: RO (occurrence: RO)
  Receive Date: 20170307
  Receipt Date: 20170307
  Transmission Date: 20170428
  Serious: Yes (Hospitalization)
  Sender: FDA-Public Use
  Company Number: RO-MYLANLABS-2017M1013634

PATIENT

DRUGS (3)
  1. ACICLOVIR [Suspect]
     Active Substance: ACYCLOVIR
     Indication: HERPES ZOSTER
     Dosage: 2% CREAM FIVE TIMES A DAY
     Route: 061
  2. TACROLIMUS. [Concomitant]
     Active Substance: TACROLIMUS
     Indication: PRODUCT USED FOR UNKNOWN INDICATION
     Dosage: ONCE-DAILY EXTENDED-RELEASE
     Route: 065
  3. ACICLOVIR [Concomitant]
     Active Substance: ACYCLOVIR
     Indication: HERPES ZOSTER
     Dosage: 4G/DAY FOR 10 DAYS
     Route: 048

REACTIONS (1)
  - Dermatitis contact [Recovered/Resolved]
